FAERS Safety Report 19428756 (Version 1)
Quarter: 2021Q2

REPORT INFORMATION
  Report Type: Spontaneous
  Country: US (occurrence: US)
  Receive Date: 20210617
  Receipt Date: 20210617
  Transmission Date: 20210717
  Serious: Yes (Hospitalization)
  Sender: FDA-Public Use
  Company Number: None

PATIENT
  Age: 73 Year
  Sex: Male
  Weight: 75.2 kg

DRUGS (1)
  1. LENALIDOMIDE (CC?5013) [Suspect]
     Active Substance: LENALIDOMIDE
     Dates: end: 20210609

REACTIONS (3)
  - Fatigue [None]
  - Pyrexia [None]
  - Neutrophil count decreased [None]

NARRATIVE: CASE EVENT DATE: 20210610
